FAERS Safety Report 5844092-1 (Version None)
Quarter: 2008Q3

REPORT INFORMATION
  Report Type: 
  Country: None (occurrence: None)
  Receive Date: 20080731
  Receipt Date: 20080424
  Transmission Date: 20090109
  Serious: No
  Sender: FDA-Public Use
  Company Number: US200804006489

PATIENT
  Sex: Female

DRUGS (6)
  1. BYETTA [Suspect]
     Indication: WEIGHT CONTROL
     Dosage: 5 UG, 2/D, SUBCUTANEOUS ; 5 UG, EACH MORNING, SUBCUTANEOUS ; 10 UG, EACH EVENING, SUBCUTANEOUS
     Route: 058
     Dates: start: 20071001, end: 20080201
  2. BYETTA [Suspect]
     Indication: WEIGHT CONTROL
     Dosage: 5 UG, 2/D, SUBCUTANEOUS ; 5 UG, EACH MORNING, SUBCUTANEOUS ; 10 UG, EACH EVENING, SUBCUTANEOUS
     Route: 058
     Dates: start: 20080201
  3. BYETTA [Suspect]
     Indication: WEIGHT CONTROL
     Dosage: 5 UG, 2/D, SUBCUTANEOUS ; 5 UG, EACH MORNING, SUBCUTANEOUS ; 10 UG, EACH EVENING, SUBCUTANEOUS
     Route: 058
     Dates: start: 20080201
  4. SYNTHROID [Concomitant]
  5. LUMIGAN [Concomitant]
  6. EXENATIDE PEN, DISPOSABLE DEVICE (EXENATIDE PEN)) PEN,DISPOSABLE [Concomitant]

REACTIONS (1)
  - BLOOD POTASSIUM INCREASED [None]
